FAERS Safety Report 15475133 (Version 3)
Quarter: 2019Q1

REPORT INFORMATION
  Report Type: Report from Study
  Country: US (occurrence: US)
  Receive Date: 20181008
  Receipt Date: 20190114
  Transmission Date: 20190417
  Serious: Yes (Other)
  Sender: FDA-Public Use
  Company Number: US-SA-2018SA277110

PATIENT
  Age: 64 Year
  Sex: Male

DRUGS (2)
  1. TERIFLUNOMIDE. [Suspect]
     Active Substance: TERIFLUNOMIDE
     Indication: MULTIPLE SCLEROSIS
     Dosage: 14 MG, QD
     Route: 048
     Dates: start: 20150709
  2. BOTOX [Concomitant]
     Active Substance: ONABOTULINUMTOXINA
     Indication: MUSCULOSKELETAL STIFFNESS
     Dosage: UNK UNK, Q3M
     Dates: start: 2018

REACTIONS (6)
  - Mobility decreased [Not Recovered/Not Resolved]
  - Fall [Unknown]
  - Product dose omission [Unknown]
  - Balance disorder [Not Recovered/Not Resolved]
  - Multiple sclerosis relapse [Not Recovered/Not Resolved]
  - Joint stiffness [Unknown]
